FAERS Safety Report 4728258-X (Version None)
Quarter: 2005Q3

REPORT INFORMATION
  Report Type: 
  Country: None (occurrence: None)
  Receive Date: 20050727
  Receipt Date: 20050714
  Transmission Date: 20060218
  Serious: Yes (Other)
  Sender: FDA-Public Use
  Company Number: 2005102418

PATIENT
  Age: 5 Year
  Sex: Male

DRUGS (2)
  1. ZYRTEC [Suspect]
     Indication: NASAL CONGESTION
     Dosage: 5 ML (5 ML, 1 IN 1 D), ORAL
     Route: 048
  2. RHINOCORT [Concomitant]

REACTIONS (2)
  - FOOD ALLERGY [None]
  - HOUSE DUST ALLERGY [None]
